FAERS Safety Report 5993880-X (Version None)
Quarter: 2008Q4

REPORT INFORMATION
  Report Type: 
  Country: None (occurrence: None)
  Receive Date: 20081212
  Receipt Date: 20080902
  Transmission Date: 20090506
  Serious: No
  Sender: FDA-Public Use
  Company Number: US-ABBOTT-08P-163-0455016-00

PATIENT
  Sex: Female
  Weight: 136.2 kg

DRUGS (11)
  1. HUMIRA [Suspect]
     Indication: PSORIATIC ARTHROPATHY
     Route: 050
     Dates: start: 20080501, end: 20080601
  2. HUMIRA [Suspect]
     Dates: start: 20080701, end: 20080701
  3. HUMIRA [Suspect]
     Dosage: PEN
     Dates: start: 20080801
  4. PREDNISONE TAB [Concomitant]
     Indication: INFLAMMATION
     Route: 048
  5. OXYCODONE HCL [Concomitant]
     Indication: PAIN
     Dosage: 10 MG AM, 20 MG PM
     Route: 048
  6. CARISOPRODOL [Concomitant]
     Indication: PAIN
     Route: 048
  7. PREGABALIN [Concomitant]
     Indication: INSOMNIA
     Route: 048
  8. ALLOPURINOL [Concomitant]
     Indication: ANXIETY
     Route: 048
  9. LEVOTHYROXINE SODIUM [Concomitant]
     Indication: HYPOTHYROIDISM
     Route: 048
     Dates: start: 20070101
  10. SUMATRIPTAN [Concomitant]
     Indication: MIGRAINE
     Route: 048
  11. SUPER B [Concomitant]
     Indication: VITAMIN SUPPLEMENTATION
     Route: 048

REACTIONS (2)
  - EAR INFECTION [None]
  - FUNGAL INFECTION [None]
